FAERS Safety Report 5042158-X (Version None)
Quarter: 2006Q2

REPORT INFORMATION
  Report Type: 
  Country: None (occurrence: None)
  Receive Date: 20060601
  Receipt Date: 20060329
  Transmission Date: 20061013
  Serious: No
  Sender: FDA-Public Use
  Company Number: 2006PV011147

PATIENT
  Age: 55 Year
  Sex: Male
  Weight: 140.6151 kg

DRUGS (3)
  1. BYETTA [Suspect]
     Indication: DIABETES MELLITUS NON-INSULIN-DEPENDENT
     Dosage: SEE IMAGE
     Route: 058
     Dates: start: 20060201, end: 20060301
  2. BYETTA [Suspect]
     Indication: DIABETES MELLITUS NON-INSULIN-DEPENDENT
     Dosage: SEE IMAGE
     Route: 058
     Dates: start: 20060301
  3. ACTOS [Concomitant]

REACTIONS (4)
  - DIARRHOEA [None]
  - GASTROENTERITIS VIRAL [None]
  - NAUSEA [None]
  - WEIGHT DECREASED [None]
